FAERS Safety Report 5340448-4 (Version None)
Quarter: 2007Q2

REPORT INFORMATION
  Report Type: 
  Country: None (occurrence: None)
  Receive Date: 20070405
  Receipt Date: 20061118
  Transmission Date: 20071010
  Serious: No
  Sender: FDA-Public Use
  Company Number: US200612002091

PATIENT
  Age: 30 Year
  Sex: Female

DRUGS (2)
  1. CYMBALTA [Suspect]
     Indication: DEPRESSION
     Dosage: 60 MG
     Dates: start: 20060401, end: 20061118
  2. NUVARING /USA/ (ETHINYLESTRADIOL, ETONOGESTREL) [Concomitant]

REACTIONS (1)
  - BLOOD PRESSURE INCREASED [None]
